FAERS Safety Report 15618789 (Version 1)
Quarter: 2018Q4

REPORT INFORMATION
  Report Type: Spontaneous
  Country: US (occurrence: US)
  Receive Date: 20181114
  Receipt Date: 20181114
  Transmission Date: 20190205
  Serious: No
  Sender: FDA-Public Use
  Company Number: None

PATIENT
  Age: 40 Year
  Sex: Female
  Weight: 54.45 kg

DRUGS (2)
  1. AVEENO ACTIVE NATURALS CLEAR COMPLEXION FOAMING CLEANSER [Suspect]
     Active Substance: SALICYLIC ACID
     Indication: SEBORRHOEA
     Dosage: ?          QUANTITY:1 6OZ;OTHER FREQUENCY:WAS NOT MENTIONED;?
     Route: 061
     Dates: start: 20181111, end: 20181112
  2. AVEENO ACTIVE NATURALS CLEAR COMPLEXION FOAMING CLEANSER [Suspect]
     Active Substance: SALICYLIC ACID
     Indication: ACNE
     Dosage: ?          QUANTITY:1 6OZ;OTHER FREQUENCY:WAS NOT MENTIONED;?
     Route: 061
     Dates: start: 20181111, end: 20181112

REACTIONS (5)
  - Pruritus [None]
  - Erythema [None]
  - Burning sensation [None]
  - Dry skin [None]
  - Skin irritation [None]

NARRATIVE: CASE EVENT DATE: 20181111
